FAERS Safety Report 6062983-6 (Version None)
Quarter: 2009Q1

REPORT INFORMATION
  Report Type: 
  Country: None (occurrence: None)
  Receive Date: 20090203
  Receipt Date: 20090123
  Transmission Date: 20090719
  Serious: Yes (Hospitalization)
  Sender: FDA-Public Use
  Company Number: B0555779A

PATIENT
  Age: 61 Year
  Sex: Male

DRUGS (3)
  1. ZOPHREN [Suspect]
     Dosage: 3MG SINGLE DOSE
     Route: 042
     Dates: start: 20070412, end: 20070412
  2. CETUXIMAB [Suspect]
     Dosage: 480MG SINGLE DOSE
     Route: 042
     Dates: start: 20070412, end: 20070412
  3. POLARAMINE [Concomitant]
     Indication: ALLERGY PROPHYLAXIS
     Dosage: 5MG SINGLE DOSE
     Route: 042
     Dates: start: 20070412, end: 20070412

REACTIONS (7)
  - BLOOD PRESSURE DECREASED [None]
  - HYPERSENSITIVITY [None]
  - LOSS OF CONSCIOUSNESS [None]
  - MALAISE [None]
  - PALLOR [None]
  - PRURIGO [None]
  - TONIC CLONIC MOVEMENTS [None]
